FAERS Safety Report 8555439-X (Version None)
Quarter: 2012Q3

REPORT INFORMATION
  Report Type: 
  Country: None (occurrence: None)
  Receive Date: 20120731
  Receipt Date: 20110825
  Transmission Date: 20120928
  Serious: Yes (Other)
  Sender: FDA-Public Use
  Company Number: US-ASTRAZENECA-2011SE12631

PATIENT
  Sex: Male

DRUGS (11)
  1. METHADOSE [Concomitant]
     Dates: start: 20050826
  2. GABAPENTIN [Concomitant]
     Dates: start: 20050826
  3. CYMBALTA [Concomitant]
     Dates: start: 20050912
  4. LIPITOR [Concomitant]
     Dates: start: 20050809
  5. HYDROCODONE BITARTRATE AND ACETAMINOPHEN [Concomitant]
     Dosage: 10/500
     Dates: start: 20050826
  6. CLONAZEPAM [Concomitant]
     Dates: start: 20050809
  7. SONATA [Concomitant]
     Dates: start: 20050912
  8. TOPROL-XL [Concomitant]
     Dates: start: 20050805
  9. HYDROCHLOROTHIAZIDE [Concomitant]
     Dates: start: 20050826
  10. DOXEPIN [Concomitant]
     Dates: start: 20050826
  11. SEROQUEL [Suspect]
     Route: 048
     Dates: start: 20050912

REACTIONS (3)
  - DIABETIC COMA [None]
  - PANCREATITIS [None]
  - TYPE 2 DIABETES MELLITUS [None]
